FAERS Safety Report 21957939 (Version 4)
Quarter: 2023Q4

REPORT INFORMATION
  Report Type: Report from Study
  Country: DE (occurrence: DE)
  Receive Date: 20230206
  Receipt Date: 20231018
  Transmission Date: 20240110
  Serious: Yes (Other)
  Sender: FDA-Public Use
  Company Number: DE-002147023-NVSC2022DE302281

PATIENT
  Sex: Female
  Weight: 67 kg

DRUGS (17)
  1. LETROZOLE [Suspect]
     Active Substance: LETROZOLE
     Indication: Hormone receptor negative HER2 positive breast cancer
     Dosage: 2.5 MG, QD
     Route: 048
     Dates: start: 20200214
  2. KISQALI [Suspect]
     Active Substance: RIBOCICLIB
     Indication: Hormone receptor negative HER2 positive breast cancer
     Dosage: 400 MG QD (SCHEMA 21 DAYS INTAKE, 7 DAYS PAUSE)
     Route: 048
     Dates: start: 20200214, end: 20200506
  3. KISQALI [Suspect]
     Active Substance: RIBOCICLIB
     Dosage: 400MG/M2 QD (SCHEMA 21 DAYS INTAKE 7 DAYS PAUSE)
     Route: 048
     Dates: start: 20200604, end: 20210217
  4. KISQALI [Suspect]
     Active Substance: RIBOCICLIB
     Dosage: 400 MG QD (SCHEMA 21 DAYS INTAKE, 7 DAYS PAUSE)
     Route: 048
     Dates: start: 20210320, end: 20210330
  5. KISQALI [Suspect]
     Active Substance: RIBOCICLIB
     Dosage: 400 MG QD (SCHEMA 21 DAYS INTAKE, 7 DAYS PAUSE)
     Route: 048
     Dates: start: 20210514, end: 20210611
  6. KISQALI [Suspect]
     Active Substance: RIBOCICLIB
     Dosage: 200 MG QD (SCHEMA 21 DAYS INTAKE, 7 DAYS PAUSE)
     Route: 048
     Dates: start: 20210702, end: 20210924
  7. KISQALI [Suspect]
     Active Substance: RIBOCICLIB
     Dosage: 200 MG QD (SCHEMA 21 DAYS INTAKE, 7 DAYS PAUSE)
     Route: 048
     Dates: start: 20211022, end: 20211216
  8. KISQALI [Suspect]
     Active Substance: RIBOCICLIB
     Dosage: 200 MG QD (SCHEMA 21 DAYS INTAKE, 7 DAYS PAUSE)
     Route: 048
     Dates: start: 20220114, end: 20220309
  9. KISQALI [Suspect]
     Active Substance: RIBOCICLIB
     Dosage: 200 MG QD (SCHEMA 21 DAYS INTAKE, 7 DAYS PAUSE)
     Route: 048
     Dates: start: 20220505, end: 20220522
  10. KISQALI [Suspect]
     Active Substance: RIBOCICLIB
     Dosage: 200 MG QD (SCHEMA 21 DAYS INTAKE, 7 DAYS PAUSE)
     Route: 048
     Dates: start: 20221215, end: 20221219
  11. KISQALI [Suspect]
     Active Substance: RIBOCICLIB
     Dosage: 200 MG QD (SCHEMA 21 DAYS INTAKE, 7 DAYS PAUSE)
     Route: 048
     Dates: start: 20230423, end: 20230522
  12. KISQALI [Suspect]
     Active Substance: RIBOCICLIB
     Dosage: 200 MG QD (SCHEMA 21 DAYS INTAKE, 7 DAYS PAUSE)
     Route: 048
     Dates: start: 20230301, end: 20230329
  13. KISQALI [Suspect]
     Active Substance: RIBOCICLIB
     Dosage: 200 MG QD (SCHEMA 21 DAYS INTAKE, 7 DAYS PAUSE)
     Route: 048
     Dates: start: 20230330, end: 20230422
  14. KISQALI [Suspect]
     Active Substance: RIBOCICLIB
     Dosage: 200 MG QD (SCHEMA 21 DAYS INTAKE, 7 DAYS PAUSE)
     Route: 048
     Dates: start: 20230719, end: 20230808
  15. KISQALI [Suspect]
     Active Substance: RIBOCICLIB
     Dosage: 200 MG QD (SCHEMA 21 DAYS INTAKE, 7 DAYS PAUSE)
     Route: 048
     Dates: start: 20230130, end: 20230228
  16. KISQALI [Suspect]
     Active Substance: RIBOCICLIB
     Dosage: 200 MG QD (SCHEMA 21 DAYS INTAKE, 7 DAYS PAUSE)
     Route: 048
     Dates: start: 20230101, end: 20230129
  17. KISQALI [Suspect]
     Active Substance: RIBOCICLIB
     Dosage: 200 MG QD (SCHEMA 21 DAYS INTAKE, 7 DAYS PAUSE)
     Route: 048
     Dates: start: 20230809

REACTIONS (2)
  - Renal impairment [Not Recovered/Not Resolved]
  - Blood creatinine increased [Not Recovered/Not Resolved]

NARRATIVE: CASE EVENT DATE: 20210218
